FAERS Safety Report 9769276 (Version 1)
Quarter: 2013Q4

REPORT INFORMATION
  Report Type: Spontaneous
  Country: AU (occurrence: None)
  Receive Date: 20131216
  Receipt Date: 20131216
  Transmission Date: 20140711
  Serious: Yes (Other)
  Sender: FDA-Public Use
  Company Number: 2013000330

PATIENT
  Sex: Female

DRUGS (8)
  1. ACEON [Suspect]
     Indication: PRODUCT USED FOR UNKNOWN INDICATION
  2. ASTRIX (ACETYSALICYLIC ACID) [Concomitant]
  3. CALTRATE + D (CALCIUM CARBONATE, COLECALCIFEROL) [Concomitant]
  4. LASIX M (FUROSEMIDE) [Concomitant]
  5. OSTELIN (ERGOCALCIFEROL) [Concomitant]
  6. RHINOCORT (BUDESONIDE) [Concomitant]
  7. SOMAC (PANTOPRAZOLE SODIUM_ [Concomitant]
  8. XALATAN (LATANOPROST) [Concomitant]

REACTIONS (2)
  - Paraesthesia [None]
  - Angioedema [None]
